FAERS Safety Report 21093681 (Version 1)
Quarter: 2022Q3

REPORT INFORMATION
  Report Type: Spontaneous
  Country: US (occurrence: None)
  Receive Date: 20220715
  Receipt Date: 20220715
  Transmission Date: 20221027
  Serious: Yes (Other)
  Sender: FDA-Public Use
  Company Number: None

PATIENT
  Age: 64 Year
  Sex: Male
  Weight: 104.4 kg

DRUGS (7)
  1. MOLNUPIRAVIR [Suspect]
     Active Substance: MOLNUPIRAVIR
     Indication: COVID-19
     Dosage: FREQUENCY : TWICE A DAY;?
     Route: 048
     Dates: start: 20220714
  2. FINASTERIDE [Concomitant]
     Active Substance: FINASTERIDE
  3. TRULANCE [Concomitant]
     Active Substance: PLECANATIDE
  4. LISINOPRIL [Concomitant]
     Active Substance: LISINOPRIL
  5. ROSUVASTATIN [Concomitant]
     Active Substance: ROSUVASTATIN
  6. TAMSULOSIN [Concomitant]
     Active Substance: TAMSULOSIN
  7. CARBAMAZEPINE [Concomitant]
     Active Substance: CARBAMAZEPINE

REACTIONS (3)
  - Dizziness [None]
  - Fall [None]
  - Dysstasia [None]

NARRATIVE: CASE EVENT DATE: 20220715
